FAERS Safety Report 11326012 (Version 1)
Quarter: 2015Q3

REPORT INFORMATION
  Report Type: Spontaneous
  Country: US (occurrence: US)
  Receive Date: 20150731
  Receipt Date: 20150731
  Transmission Date: 20151125
  Serious: Yes (Other)
  Sender: FDA-Public Use
  Company Number: US-ASTRAZENECA-2015SE72705

PATIENT
  Sex: Male

DRUGS (1)
  1. SEROQUEL [Suspect]
     Active Substance: QUETIAPINE FUMARATE
     Route: 048

REACTIONS (7)
  - Diabetes mellitus [Unknown]
  - Tooth loss [Unknown]
  - Tremor [Unknown]
  - Protrusion tongue [Unknown]
  - Gingival disorder [Unknown]
  - Gingival recession [Unknown]
  - Tooth disorder [Unknown]
